FAERS Safety Report 14711053 (Version 1)
Quarter: 2018Q2

REPORT INFORMATION
  Report Type: Spontaneous
  Country: US (occurrence: US)
  Receive Date: 20180403
  Receipt Date: 20180403
  Transmission Date: 20180711
  Serious: Yes (Hospitalization, Other)
  Sender: FDA-Public Use
  Company Number: US-ASTRAZENECA-2018SE40141

PATIENT
  Age: 20964 Day
  Sex: Female
  Weight: 64.4 kg

DRUGS (4)
  1. SYMBICORT [Suspect]
     Active Substance: BUDESONIDE\FORMOTEROL FUMARATE DIHYDRATE
     Indication: MULTIPLE ALLERGIES
     Dosage: AS REQUIRED AS REQUIRED
     Route: 055
  2. LEVOTHYROXINE. [Concomitant]
     Active Substance: LEVOTHYROXINE
     Indication: THYROID DISORDER
     Route: 048
     Dates: start: 2016
  3. SYMBICORT [Suspect]
     Active Substance: BUDESONIDE\FORMOTEROL FUMARATE DIHYDRATE
     Indication: MULTIPLE ALLERGIES
     Dosage: 160/4.5 MCG 2 INHALATIONS TWICE A DAY AS REQUIRED
     Route: 055
     Dates: start: 2006
  4. CLOPIDOGREL [Concomitant]
     Active Substance: CLOPIDOGREL BISULFATE
     Indication: ANTICOAGULANT THERAPY
     Route: 048
     Dates: start: 2016

REACTIONS (23)
  - Blood pressure decreased [Unknown]
  - Muscular weakness [Unknown]
  - Cerebrovascular accident [Unknown]
  - Cardiovascular disorder [Unknown]
  - Foot fracture [Unknown]
  - Amnesia [Unknown]
  - Gait disturbance [Unknown]
  - Hypothyroidism [Unknown]
  - Dyspnoea [Unknown]
  - Asthma [Unknown]
  - Stress [Unknown]
  - Crying [Unknown]
  - Aphasia [Unknown]
  - Loss of personal independence in daily activities [Unknown]
  - Pulmonary function test decreased [Unknown]
  - Apparent death [Unknown]
  - Paraesthesia [Unknown]
  - Bronchitis [Unknown]
  - Weight increased [Unknown]
  - Product use issue [Unknown]
  - Off label use [Unknown]
  - Fall [Unknown]
  - Nervousness [Unknown]

NARRATIVE: CASE EVENT DATE: 20160509
